FAERS Safety Report 9924115 (Version 2)
Quarter: 2014Q1

REPORT INFORMATION
  Report Type: Spontaneous
  Country: US (occurrence: US)
  Receive Date: 20140226
  Receipt Date: 20140303
  Transmission Date: 20141002
  Serious: Yes (Other)
  Sender: FDA-Public Use
  Company Number: US-009507513-1402USA011382

PATIENT
  Sex: Female

DRUGS (3)
  1. SINGULAIR [Suspect]
     Indication: ASTHMA
     Dosage: UNK
     Route: 048
     Dates: start: 201302
  2. ADVAIR DISKUS [Suspect]
     Indication: ASTHMA
     Dosage: 1 DF, BID, 1 PUFF/ TWICE PER DAY, INHALED, STRENGTH INCREASED FROM 250/50 MCG UP TO 500/50 MCG
     Route: 055
  3. ADVAIR DISKUS [Suspect]
     Indication: CHRONIC OBSTRUCTIVE PULMONARY DISEASE

REACTIONS (9)
  - Candida infection [Not Recovered/Not Resolved]
  - Productive cough [Recovering/Resolving]
  - Dyspnoea [Not Recovered/Not Resolved]
  - Sensation of foreign body [Unknown]
  - Obstructive airways disorder [Unknown]
  - Spirometry abnormal [Unknown]
  - Malaise [Recovering/Resolving]
  - Cough [Recovering/Resolving]
  - Drug ineffective [Unknown]
